FAERS Safety Report 8463535-0 (Version None)
Quarter: 2012Q2

REPORT INFORMATION
  Report Type: 
  Country: None (occurrence: None)
  Receive Date: 20120625
  Receipt Date: 20120618
  Transmission Date: 20120825
  Serious: Yes (Other)
  Sender: FDA-Public Use
  Company Number: BE-BAXTER-2012BAX009108

PATIENT
  Sex: Female
  Weight: 62 kg

DRUGS (6)
  1. CYCLOPHOSPHAMIDE [Suspect]
     Indication: BREAST CANCER
     Route: 065
     Dates: start: 20111228, end: 20120301
  2. TAXOTERE [Suspect]
     Indication: BREAST CANCER
     Route: 041
     Dates: start: 20111228, end: 20120301
  3. NEULASTA [Suspect]
     Indication: CHEMOTHERAPY
     Route: 058
     Dates: start: 20111229
  4. SIPRALEXA                          /01588501/ [Concomitant]
     Route: 065
  5. COLECALCIFEROL [Concomitant]
     Route: 065
  6. SIMVASTATIN [Concomitant]
     Route: 065

REACTIONS (9)
  - BONE PAIN [None]
  - FATIGUE [None]
  - VOMITING [None]
  - MUCOSAL DRYNESS [None]
  - HERPES SIMPLEX [None]
  - HEADACHE [None]
  - CONSTIPATION [None]
  - HYPERHIDROSIS [None]
  - DECREASED APPETITE [None]
